FAERS Safety Report 8968064 (Version 3)
Quarter: 2013Q2

REPORT INFORMATION
  Report Type: Spontaneous
  Country: US (occurrence: None)
  Receive Date: 20121207
  Receipt Date: 20130426
  Transmission Date: 20140414
  Serious: Yes (Other)
  Sender: FDA-Public Use
  Company Number: ACO_33148_2012

PATIENT
  Age: 62 Year
  Sex: Female
  Weight: 77.1 kg

DRUGS (2)
  1. AMPYRA (DALFAMPRIDINE) TABLET, 10MG [Suspect]
     Indication: MULTIPLE SCLEROSIS
     Route: 048
     Dates: start: 20121027, end: 20121118
  2. ALL OTHER THERAPEUTIC PRODUCTS ONGOING [Concomitant]

REACTIONS (13)
  - Hypertension [None]
  - Heart rate increased [None]
  - Fall [None]
  - Wound [None]
  - Musculoskeletal stiffness [None]
  - Vertigo [None]
  - Weight decreased [None]
  - Urinary tract infection [None]
  - Nausea [None]
  - Streptococcus test positive [None]
  - Musculoskeletal stiffness [None]
  - Wound [None]
  - Vertigo [None]
